FAERS Safety Report 4332166-6 (Version None)
Quarter: 2004Q1

REPORT INFORMATION
  Report Type: 
  Country: None (occurrence: None)
  Receive Date: 20040331
  Receipt Date: 20040311
  Transmission Date: 20041129
  Serious: Yes (Death)
  Sender: FDA-Public Use
  Company Number: EWC040338419

PATIENT
  Age: 90 Year
  Sex: Female
  Weight: 89 kg

DRUGS (2)
  1. ZYPREXA [Suspect]
     Indication: DISORIENTATION
     Dosage: 10 MG/1 DAY
     Route: 048
     Dates: start: 20030520
  2. LORAZEPAM [Concomitant]

REACTIONS (2)
  - AGRANULOCYTOSIS [None]
  - CARDIOMYOPATHY [None]
